FAERS Safety Report 22067016 (Version 1)
Quarter: 2023Q1

REPORT INFORMATION
  Report Type: Spontaneous
  Country: US (occurrence: US)
  Receive Date: 20230306
  Receipt Date: 20230306
  Transmission Date: 20230418
  Serious: No
  Sender: FDA-Public Use
  Company Number: US-PLXPHARMA-2022-PLX-00028

PATIENT

DRUGS (1)
  1. VAZALORE [Suspect]
     Active Substance: ASPIRIN
     Indication: Arthralgia
     Route: 048
     Dates: start: 202202, end: 202202

REACTIONS (7)
  - Malaise [Unknown]
  - Abdominal pain upper [Unknown]
  - Vomiting [Unknown]
  - Nausea [Unknown]
  - Product physical issue [Unknown]
  - Product physical consistency issue [Unknown]
  - Product leakage [Unknown]

NARRATIVE: CASE EVENT DATE: 20220201
